FAERS Safety Report 15394301 (Version 1)
Quarter: 2018Q3

REPORT INFORMATION
  Report Type: Report from Study
  Country: None (occurrence: US)
  Receive Date: 20180918
  Receipt Date: 20180918
  Transmission Date: 20181010
  Serious: Yes (Other)
  Sender: FDA-Public Use
  Company Number: US-ABBVIE-17K-163-2049741-00

PATIENT
  Age: 27 Year
  Sex: Female

DRUGS (1)
  1. HUMIRA [Suspect]
     Active Substance: ADALIMUMAB
     Indication: CROHN^S DISEASE
     Route: 058
     Dates: start: 201609

REACTIONS (8)
  - Premature rupture of membranes [Unknown]
  - Live birth [Unknown]
  - Exposure during pregnancy [Unknown]
  - Premature delivery [Unknown]
  - Twin pregnancy [Unknown]
  - Constipation [Unknown]
  - Pre-eclampsia [Unknown]
  - Suppressed lactation [Not Recovered/Not Resolved]

NARRATIVE: CASE EVENT DATE: 2017
